FAERS Safety Report 24356938 (Version 1)
Quarter: 2024Q3

REPORT INFORMATION
  Report Type: Spontaneous
  Country: GB (occurrence: GB)
  Receive Date: 20240924
  Receipt Date: 20240924
  Transmission Date: 20241016
  Serious: Yes (Life-Threatening, Hospitalization, Other)
  Sender: STRIDES
  Company Number: GB-MLMSERVICE-20240904-PI183515-00270-1

PATIENT
  Age: 70 Year
  Sex: Female

DRUGS (3)
  1. PREDNISOLONE [Suspect]
     Active Substance: PREDNISOLONE
     Indication: Neoplasm recurrence
     Dosage: UNK
  2. PREDNISOLONE [Suspect]
     Active Substance: PREDNISOLONE
     Indication: Ovarian cancer
  3. PREDNISOLONE [Suspect]
     Active Substance: PREDNISOLONE
     Indication: Endometrial adenocarcinoma

REACTIONS (8)
  - Gastritis haemorrhagic [Recovering/Resolving]
  - Syncope [Recovered/Resolved]
  - Haemoglobin decreased [Recovering/Resolving]
  - Gastritis bacterial [Recovering/Resolving]
  - Septic shock [Recovering/Resolving]
  - Pulmonary embolism [Unknown]
  - Gastrointestinal ischaemia [Recovering/Resolving]
  - Necrosis ischaemic [Recovering/Resolving]
